FAERS Safety Report 9867684 (Version 1)
Quarter: 2014Q1

REPORT INFORMATION
  Report Type: Spontaneous
  Country: US (occurrence: None)
  Receive Date: 20140203
  Receipt Date: 20140203
  Transmission Date: 20141002
  Serious: Yes (Other)
  Sender: FDA-Public Use
  Company Number: None

PATIENT
  Age: 72 Year
  Sex: Female

DRUGS (1)
  1. MARCAINE SPINAL [Suspect]
     Indication: SPINAL ANAESTHESIA
     Route: 037
     Dates: start: 20140129, end: 20140129

REACTIONS (1)
  - Drug effect decreased [None]
